FAERS Safety Report 23533327 (Version 1)
Quarter: 2024Q1

REPORT INFORMATION
  Report Type: Spontaneous
  Country: US (occurrence: US)
  Receive Date: 20240216
  Receipt Date: 20240216
  Transmission Date: 20240409
  Serious: No
  Sender: FDA-Public Use
  Company Number: US-LUNDBECK-DKLU3072974

PATIENT
  Age: 78 Year
  Sex: Female

DRUGS (1)
  1. VYEPTI [Suspect]
     Active Substance: EPTINEZUMAB-JJMR
     Indication: Product used for unknown indication
     Route: 041
     Dates: start: 20230914

REACTIONS (4)
  - Pruritus [Unknown]
  - Throat irritation [Unknown]
  - Nausea [Unknown]
  - Hyperhidrosis [Unknown]
